FAERS Safety Report 6314677-7 (Version None)
Quarter: 2009Q3

REPORT INFORMATION
  Report Type: 
  Country: None (occurrence: None)
  Receive Date: 20090819
  Receipt Date: 20090806
  Transmission Date: 20100115
  Serious: Yes (Other)
  Sender: FDA-Public Use
  Company Number: FR-AVENTIS-200912910FR

PATIENT
  Age: 46 Year
  Sex: Male

DRUGS (1)
  1. LOVENOX [Suspect]
     Dates: start: 20090728, end: 20090728

REACTIONS (3)
  - ACCIDENTAL NEEDLE STICK [None]
  - PRODUCT QUALITY ISSUE [None]
  - SKIN INJURY [None]
